FAERS Safety Report 8614853 (Version 6)
Quarter: 2014Q2

REPORT INFORMATION
  Report Type: Report from Study
  Country: JP (occurrence: JP)
  Receive Date: 20120614
  Receipt Date: 20140612
  Transmission Date: 20141212
  Serious: Yes (Hospitalization)
  Sender: FDA-Public Use
  Company Number: JP-JNJFOC-20120604680

PATIENT
  Age: 64 Year
  Sex: Female
  Weight: 35 kg

DRUGS (13)
  1. SIMPONI [Suspect]
     Indication: RHEUMATOID ARTHRITIS
     Route: 058
     Dates: start: 20120508, end: 20120605
  2. SIMPONI [Suspect]
     Indication: RHEUMATOID ARTHRITIS
     Route: 058
     Dates: start: 20120410
  3. METHOTREXATE [Concomitant]
     Indication: RHEUMATOID ARTHRITIS
     Dates: end: 20120605
  4. BUCILLAMINE [Concomitant]
     Indication: RHEUMATOID ARTHRITIS
     Route: 048
  5. METHYLPREDNISOLONE [Concomitant]
     Indication: RHEUMATOID ARTHRITIS
     Route: 048
  6. SODIUM RISEDRONATE [Concomitant]
     Route: 048
  7. ESTAZOLAM [Concomitant]
     Route: 048
  8. MOSAPRIDE CITRATE [Concomitant]
     Indication: PROPHYLAXIS
     Route: 048
  9. POLAPREZINC [Concomitant]
     Indication: PROPHYLAXIS
     Route: 048
  10. PRANLUKAST [Concomitant]
     Route: 048
  11. SODIUM RABEPRAZOLE [Concomitant]
     Indication: PROPHYLAXIS
     Route: 048
  12. FELBINAC [Concomitant]
     Indication: RHEUMATOID ARTHRITIS
     Route: 061
     Dates: start: 20080410, end: 20120508
  13. FLURBIPROFEN [Concomitant]
     Indication: RHEUMATOID ARTHRITIS
     Route: 061
     Dates: start: 20120508

REACTIONS (1)
  - Asthma [Recovering/Resolving]
